FAERS Safety Report 7921584-2 (Version None)
Quarter: 2011Q4

REPORT INFORMATION
  Report Type: 
  Country: None (occurrence: None)
  Receive Date: 20111117
  Receipt Date: 20111116
  Transmission Date: 20120403
  Serious: Yes (Death, Other)
  Sender: FDA-Public Use
  Company Number: PHEH2009US02345

PATIENT
  Sex: Female

DRUGS (16)
  1. INDOCIN [Concomitant]
  2. DESYREL [Concomitant]
     Dosage: 100 MG, QHS
     Route: 048
  3. LASIX [Concomitant]
  4. WELLBUTRIN [Concomitant]
  5. LIPITOR [Concomitant]
  6. PERCOCET [Concomitant]
  7. AMBIEN [Concomitant]
     Dosage: 5 MG, QHS
  8. LOPRESSOR [Concomitant]
  9. REMERON [Concomitant]
     Dosage: 3 DF, QHS
     Route: 048
  10. PREVACID [Concomitant]
     Dosage: 30 MG, QD
     Route: 048
  11. TRAZODONE HCL [Concomitant]
  12. DEMEROL [Concomitant]
  13. NICOTINE [Concomitant]
     Route: 062
  14. PREDNISONE TAB [Concomitant]
  15. CEPHALEXIN [Concomitant]
     Dosage: 500 MG, BID
     Route: 048
  16. ZOMETA [Suspect]
     Indication: NEOPLASM MALIGNANT
     Dosage: UNK
     Dates: start: 20030101, end: 20060101

REACTIONS (65)
  - OSTEONECROSIS OF JAW [None]
  - JAW FRACTURE [None]
  - RENAL IMPAIRMENT [None]
  - INJURY [None]
  - ASPARTATE AMINOTRANSFERASE DECREASED [None]
  - METASTASES TO BONE [None]
  - NODULE [None]
  - SPINAL OSTEOARTHRITIS [None]
  - DIZZINESS [None]
  - RADIATION NECROSIS [None]
  - ARTERIOSCLEROSIS [None]
  - OSTEOMYELITIS CHRONIC [None]
  - PALPITATIONS [None]
  - WEIGHT INCREASED [None]
  - PNEUMONIA [None]
  - URINARY TRACT INFECTION [None]
  - PHYSICAL DISABILITY [None]
  - BLOOD GLUCOSE INCREASED [None]
  - BLOOD TRIGLYCERIDES INCREASED [None]
  - DIVERTICULUM INTESTINAL [None]
  - VASOGENIC CEREBRAL OEDEMA [None]
  - METASTASES TO LUNG [None]
  - ENCEPHALOMALACIA [None]
  - CELLULITIS [None]
  - MEMORY IMPAIRMENT [None]
  - BONE LOSS [None]
  - GENERAL PHYSICAL HEALTH DETERIORATION [None]
  - NEOPLASM PROGRESSION [None]
  - SWELLING [None]
  - TREMOR [None]
  - POOR QUALITY SLEEP [None]
  - HYPOTENSION [None]
  - HYPOKALAEMIA [None]
  - NASAL SEPTUM DEVIATION [None]
  - CRANIOCEREBRAL INJURY [None]
  - ORAL CAVITY FISTULA [None]
  - INFECTION [None]
  - DEFORMITY [None]
  - DEPRESSION [None]
  - METASTASES TO CENTRAL NERVOUS SYSTEM [None]
  - DIARRHOEA [None]
  - STOMATITIS [None]
  - ABSCESS [None]
  - EMOTIONAL DISTRESS [None]
  - ANXIETY [None]
  - ALANINE AMINOTRANSFERASE DECREASED [None]
  - CHOLELITHIASIS [None]
  - SUICIDAL IDEATION [None]
  - FLATULENCE [None]
  - HYPERTENSION [None]
  - HYPOCALCAEMIA [None]
  - EAR DISCOMFORT [None]
  - DEATH [None]
  - RENAL CELL CARCINOMA [None]
  - THROMBOCYTOPENIA [None]
  - DEHYDRATION [None]
  - PAIN [None]
  - SEXUAL DYSFUNCTION [None]
  - OVERDOSE [None]
  - CLAVICLE FRACTURE [None]
  - CEREBRAL ISCHAEMIA [None]
  - SYNCOPE [None]
  - DECREASED APPETITE [None]
  - PLEURAL EFFUSION [None]
  - HERPES ZOSTER [None]
